FAERS Safety Report 5124500-4 (Version None)
Quarter: 2006Q4

REPORT INFORMATION
  Report Type: 
  Country: None (occurrence: None)
  Receive Date: 20060821
  Receipt Date: 20060721
  Transmission Date: 20070319
  Serious: No
  Sender: FDA-Public Use
  Company Number: TPA2006A01167

PATIENT
  Age: 56 Year
  Sex: Male
  Weight: 84.369 kg

DRUGS (3)
  1. ROZEREM [Suspect]
     Indication: SLEEP DISORDER
     Dosage: 8 MG, QHS, PER ORAL
     Route: 048
     Dates: start: 20060718
  2. ALPRAZOLAM [Suspect]
     Indication: SLEEP DISORDER
     Dosage: 2 MG, QHS, PER ORAL
     Route: 048
     Dates: start: 20060101
  3. METHYLPHENIDATE HCL [Suspect]
     Indication: DISTURBANCE IN ATTENTION
     Dosage: 20 MG, 1 IN 1 D, PER ORAL
     Route: 048
     Dates: start: 20060719

REACTIONS (6)
  - ABNORMAL DREAMS [None]
  - CHEST DISCOMFORT [None]
  - CHEST PAIN [None]
  - INITIAL INSOMNIA [None]
  - POOR QUALITY SLEEP [None]
  - RESTLESSNESS [None]
